FAERS Safety Report 9512289 (Version 1)
Quarter: 2013Q3

REPORT INFORMATION
  Report Type: Spontaneous
  Country: US (occurrence: US)
  Receive Date: 20130910
  Receipt Date: 20130910
  Transmission Date: 20140515
  Serious: No
  Sender: FDA-Public Use
  Company Number: -SAAVPROD-BMS15658966

PATIENT
  Age: 79 Year
  Sex: Female
  Weight: 55 kg

DRUGS (5)
  1. AVAPRO [Suspect]
     Indication: HYPERTENSION
     Route: 048
  2. IRBESARTAN [Suspect]
  3. COREG [Suspect]
     Indication: HYPERTENSION
  4. BYSTOLIC [Suspect]
     Dosage: AT NIGHT,10 MG
  5. HYDRALAZINE [Suspect]

REACTIONS (3)
  - Hypertension [Unknown]
  - Dizziness [Unknown]
  - Weight decreased [Unknown]
